FAERS Safety Report 15385362 (Version 9)
Quarter: 2019Q2

REPORT INFORMATION
  Report Type: Spontaneous
  Country: CA (occurrence: CA)
  Receive Date: 20180914
  Receipt Date: 20190522
  Transmission Date: 20190711
  Serious: Yes (Other)
  Sender: FDA-Public Use
  Company Number: CA-CELLTRION INC.-2017CA016395

PATIENT

DRUGS (15)
  1. INFLECTRA [Suspect]
     Active Substance: INFLIXIMAB-DYYB
     Dosage: 500MG, 500 MG, EVERY 0, 2, 6 THEN EVERY 6 WEEKS
     Route: 042
     Dates: start: 20180112
  2. INFLECTRA [Suspect]
     Active Substance: INFLIXIMAB-DYYB
     Indication: ANKYLOSING SPONDYLITIS
     Dosage: 500 MG, EVERY 0, 2, 6, THEN EVERY 6 WEEKS
     Route: 042
     Dates: start: 20170809
  3. INFLECTRA [Suspect]
     Active Substance: INFLIXIMAB-DYYB
     Dosage: 500 MG, EVERY 4 WEEKS
     Route: 042
     Dates: start: 20190201
  4. INFLECTRA [Suspect]
     Active Substance: INFLIXIMAB-DYYB
     Dosage: 500 MG EVERY 4 WEEKS
     Route: 042
     Dates: start: 20190201
  5. INFLECTRA [Suspect]
     Active Substance: INFLIXIMAB-DYYB
     Dosage: 500 MG, EVERY 0, 2, 6 THEN EVERY 6 WEEKS
     Route: 042
     Dates: start: 20181122
  6. INFLECTRA [Suspect]
     Active Substance: INFLIXIMAB-DYYB
     Dosage: 500 MG EVERY 4 WEEKS
     Route: 042
     Dates: start: 20190301
  7. INFLECTRA [Suspect]
     Active Substance: INFLIXIMAB-DYYB
     Dosage: 500 MG, EVERY 0, 2, 6 THEN EVERY 6 WEEKS
     Route: 042
     Dates: start: 20190104, end: 20190104
  8. INFLECTRA [Suspect]
     Active Substance: INFLIXIMAB-DYYB
     Dosage: 500 MG, EVERY 0, 2, 6 THEN EVERY 6 WEEKS
     Route: 042
     Dates: start: 20180420
  9. INFLECTRA [Suspect]
     Active Substance: INFLIXIMAB-DYYB
     Dosage: 500 MG, EVERY 4 WEEKS
     Route: 042
     Dates: start: 20190329
  10. INFLECTRA [Suspect]
     Active Substance: INFLIXIMAB-DYYB
     Dosage: 500 MG, EVERY 0, 2, 6 THEN EVERY 6 WEEKS
     Route: 042
     Dates: start: 20180720
  11. INFLECTRA [Suspect]
     Active Substance: INFLIXIMAB-DYYB
     Dosage: 500 MG, EVERY 4 WEEKS
     Route: 042
     Dates: start: 20190426
  12. NAPROXEN. [Concomitant]
     Active Substance: NAPROXEN
     Dosage: UNK
  13. INFLECTRA [Suspect]
     Active Substance: INFLIXIMAB-DYYB
     Dosage: 500 MG, EVERY 0, 2, 6 THEN EVERY 6 WEEKS
     Route: 042
     Dates: start: 20180302
  14. INFLECTRA [Suspect]
     Active Substance: INFLIXIMAB-DYYB
     Dosage: 500 MG, EVERY 0, 2, 6 THEN EVERY 6 WEEKS
     Route: 042
     Dates: start: 20181012
  15. INFLECTRA [Suspect]
     Active Substance: INFLIXIMAB-DYYB
     Dosage: UNK
     Route: 065
     Dates: start: 20180831

REACTIONS (12)
  - Pyelonephritis [Unknown]
  - Nasopharyngitis [Not Recovered/Not Resolved]
  - Headache [Not Recovered/Not Resolved]
  - Prostatitis [Unknown]
  - Nasal congestion [Not Recovered/Not Resolved]
  - Drug level above therapeutic [Unknown]
  - Blood pressure fluctuation [Not Recovered/Not Resolved]
  - Product use issue [Unknown]
  - Weight decreased [Recovered/Resolved]
  - Cough [Not Recovered/Not Resolved]
  - Condition aggravated [Unknown]
  - Off label use [Unknown]

NARRATIVE: CASE EVENT DATE: 2017
